FAERS Safety Report 6803045-7 (Version None)
Quarter: 2010Q2

REPORT INFORMATION
  Report Type: 
  Country: None (occurrence: None)
  Receive Date: 20100628
  Receipt Date: 20100616
  Transmission Date: 20101027
  Serious: Yes (Other)
  Sender: FDA-Public Use
  Company Number: US-JNJFOC-20100605543

PATIENT
  Sex: Female
  Weight: 56.25 kg

DRUGS (1)
  1. TERAZOL 7 [Suspect]
     Indication: FUNGAL INFECTION
     Route: 067

REACTIONS (6)
  - BLOOD IMMUNOGLOBULIN G DECREASED [None]
  - FUNGAL INFECTION [None]
  - HYPOKALAEMIA [None]
  - INCORRECT ROUTE OF DRUG ADMINISTRATION [None]
  - SELECTIVE IGA IMMUNODEFICIENCY [None]
  - VULVOVAGINAL MYCOTIC INFECTION [None]
